FAERS Safety Report 21842872 (Version 2)
Quarter: 2023Q2

REPORT INFORMATION
  Report Type: Spontaneous
  Country: US (occurrence: US)
  Receive Date: 20230110
  Receipt Date: 20230406
  Transmission Date: 20230722
  Serious: Yes (Hospitalization)
  Sender: FDA-Public Use
  Company Number: US-PFIZER INC-202300008673

PATIENT
  Age: 59 Year
  Sex: Female

DRUGS (1)
  1. IBRANCE [Suspect]
     Active Substance: PALBOCICLIB
     Dosage: 125 MG, CYCLIC (1 TABLET, DAILY FOR 21 DAYS ON, THEN 7 DAYS OFF)
     Route: 048
     Dates: start: 20221221

REACTIONS (8)
  - Radiotherapy to brain [Unknown]
  - Product dose omission issue [Unknown]
  - Abdominal pain [Recovering/Resolving]
  - Diarrhoea [Recovering/Resolving]
  - Decreased appetite [Not Recovered/Not Resolved]
  - Nasopharyngitis [Not Recovered/Not Resolved]
  - Nausea [Not Recovered/Not Resolved]
  - Secretion discharge [Not Recovered/Not Resolved]

NARRATIVE: CASE EVENT DATE: 20230104
